FAERS Safety Report 8176900-6 (Version None)
Quarter: 2012Q1

REPORT INFORMATION
  Report Type: 
  Country: None (occurrence: None)
  Receive Date: 20120301
  Receipt Date: 20120224
  Transmission Date: 20120608
  Serious: Yes (Life-Threatening, Hospitalization)
  Sender: FDA-Public Use
  Company Number: US-PFIZER INC-2011099537

PATIENT
  Age: 12 Year
  Sex: Female

DRUGS (1)
  1. SULFAMETHOXAZOLE AND TRIMETHOPRIM [Suspect]
     Dosage: UNK
     Dates: start: 20110310

REACTIONS (3)
  - SWELLING [None]
  - HYPERSENSITIVITY [None]
  - RASH [None]
